FAERS Safety Report 6774384-3 (Version None)
Quarter: 2010Q2

REPORT INFORMATION
  Report Type: 
  Country: None (occurrence: None)
  Receive Date: 20100520
  Receipt Date: 20090528
  Transmission Date: 20101027
  Serious: Yes (Other)
  Sender: FDA-Public Use
  Company Number: 2008055325

PATIENT
  Age: 63 Year
  Sex: Female

DRUGS (9)
  1. PROVERA [Suspect]
     Indication: HORMONE REPLACEMENT THERAPY
     Dosage: 5 MG, ORAL
     Route: 048
     Dates: start: 19890901, end: 20010401
  2. MEDROXYPROGESTERONE ACETATE [Suspect]
     Indication: HORMONE REPLACEMENT THERAPY
     Dosage: ORAL
     Route: 048
     Dates: start: 19890901, end: 20010401
  3. PREMARIN [Suspect]
     Indication: HORMONE REPLACEMENT THERAPY
     Dosage: 0.625 MG ; 1.25 MG
     Dates: start: 19890901, end: 20010401
  4. PREMARIN [Suspect]
     Indication: HORMONE REPLACEMENT THERAPY
     Dosage: 0.625 MG ; 1.25 MG
     Dates: start: 19890901, end: 20010401
  5. DILTIAZEM [Concomitant]
  6. FLONASE [Concomitant]
  7. ASPIRIN [Concomitant]
  8. DILACOR XR [Concomitant]
  9. ZOCOR [Concomitant]

REACTIONS (1)
  - BREAST CANCER [None]
